FAERS Safety Report 4784288-3 (Version None)
Quarter: 2005Q3

REPORT INFORMATION
  Report Type: 
  Country: None (occurrence: None)
  Receive Date: 20050930
  Receipt Date: 20050916
  Transmission Date: 20060218
  Serious: Yes (Hospitalization)
  Sender: FDA-Public Use
  Company Number: GBWYE985716SEP05

PATIENT
  Sex: Female
  Weight: 48 kg

DRUGS (2)
  1. ENBREL [Suspect]
     Indication: RHEUMATOID ARTHRITIS
     Route: 058
     Dates: start: 20040918
  2. METHOTREXATE [Concomitant]

REACTIONS (2)
  - FRACTURE [None]
  - LOWER RESPIRATORY TRACT INFECTION [None]
